FAERS Safety Report 9698103 (Version 1)
Quarter: 2013Q4

REPORT INFORMATION
  Report Type: Report from Study
  Country: CA (occurrence: CA)
  Receive Date: 20131120
  Receipt Date: 20131120
  Transmission Date: 20140711
  Serious: Yes (Other)
  Sender: FDA-Public Use
  Company Number: CA-JNJFOC-20131109687

PATIENT
  Age: 56 Year
  Sex: Female
  Weight: 57.15 kg

DRUGS (6)
  1. REMICADE [Suspect]
     Indication: CROHN^S DISEASE
     Dosage: 53RD INFUSION
     Route: 042
     Dates: start: 20130916
  2. REMICADE [Suspect]
     Indication: CROHN^S DISEASE
     Route: 042
     Dates: start: 2004
  3. ASACOL [Concomitant]
     Route: 065
  4. PANTOLOC [Concomitant]
     Route: 065
  5. FOLIC ACID [Concomitant]
     Route: 065
  6. TEMAZEPAM [Concomitant]
     Route: 065

REACTIONS (2)
  - Flank pain [Recovering/Resolving]
  - Haematuria [Recovering/Resolving]
